FAERS Safety Report 5590153-4 (Version None)
Quarter: 2008Q1

REPORT INFORMATION
  Report Type: 
  Country: None (occurrence: None)
  Receive Date: 20080114
  Receipt Date: 20070604
  Transmission Date: 20080703
  Serious: No
  Sender: FDA-Public Use
  Company Number: US-ABBOTT-07P-163-0371158-00

PATIENT
  Age: 7 Year
  Sex: Female

DRUGS (1)
  1. CEFDINIR [Suspect]
     Indication: SINUSITIS
     Dates: start: 20070201, end: 20070306

REACTIONS (5)
  - ABASIA [None]
  - ARTHRALGIA [None]
  - ERYTHEMA [None]
  - JOINT SWELLING [None]
  - MUSCULAR WEAKNESS [None]
